FAERS Safety Report 6214131-7 (Version None)
Quarter: 2009Q2

REPORT INFORMATION
  Report Type: 
  Country: None (occurrence: None)
  Receive Date: 20090604
  Receipt Date: 20090527
  Transmission Date: 20091009
  Serious: Yes (Hospitalization)
  Sender: FDA-Public Use
  Company Number: US-BIOGENIDEC-2009BI012690

PATIENT
  Age: 51 Year
  Sex: Female

DRUGS (7)
  1. TYSABRI [Suspect]
     Indication: MULTIPLE SCLEROSIS
     Route: 042
     Dates: start: 20081210
  2. DIGOXIN [Concomitant]
  3. LISINOPRIL [Concomitant]
  4. TOPROL-XL [Concomitant]
  5. PRAVACHOL [Concomitant]
  6. COUMADIN [Concomitant]
  7. LASIX [Concomitant]

REACTIONS (6)
  - COUGH [None]
  - DYSPHONIA [None]
  - HEART RATE INCREASED [None]
  - HYPOTENSION [None]
  - NASAL CONGESTION [None]
  - SYNCOPE [None]
